FAERS Safety Report 9725247 (Version 1)
Quarter: 2013Q4

REPORT INFORMATION
  Report Type: Spontaneous
  Country: US (occurrence: None)
  Receive Date: 20131202
  Receipt Date: 20131202
  Transmission Date: 20140711
  Serious: No
  Sender: FDA-Public Use
  Company Number: None

PATIENT
  Age: 14 Year
  Sex: Female
  Weight: 50.8 kg

DRUGS (2)
  1. JUNEL FE [Suspect]
     Indication: MENSTRUATION IRREGULAR
     Dosage: 1  ONCE DAILY TAKEN BY MOUTH
     Route: 048
     Dates: start: 20130716, end: 20130814
  2. JUNEL FE [Suspect]
     Indication: HAEMORRHAGE
     Dosage: 1  ONCE DAILY TAKEN BY MOUTH
     Route: 048
     Dates: start: 20130716, end: 20130814

REACTIONS (5)
  - Headache [None]
  - Pain [None]
  - Muscle spasms [None]
  - Vomiting in pregnancy [None]
  - Amenorrhoea [None]
